FAERS Safety Report 9401468 (Version 2)
Quarter: 2013Q3

REPORT INFORMATION
  Report Type: Report from Study
  Country: BR (occurrence: BR)
  Receive Date: 20130716
  Receipt Date: 20130729
  Transmission Date: 20140515
  Serious: Yes (Other)
  Sender: FDA-Public Use
  Company Number: BR-AMGEN-BRACT2011005409

PATIENT
  Age: 73 Year
  Sex: Female
  Weight: 55 kg

DRUGS (11)
  1. ETANERCEPT [Suspect]
     Indication: RHEUMATOID ARTHRITIS
     Dosage: 50 MG, ONCE A WEEK
     Route: 058
     Dates: start: 20101219, end: 2012
  2. ETANERCEPT [Suspect]
     Dosage: 50 MG, ONCE A WEEK
     Route: 058
     Dates: start: 2012, end: 2013
  3. METHOTREXATE [Concomitant]
     Dosage: UNK
     Route: 042
  4. SIMVASTATIN [Concomitant]
     Dosage: UNK
  5. CALCIUM BICARBONATE [Concomitant]
     Dosage: UNK
  6. PURAN T4 [Concomitant]
     Dosage: 50 UNITS, UNK
  7. PANTOPRAZOL [Concomitant]
     Dosage: UNK
  8. PREDSIM [Concomitant]
     Dosage: 5 MG, 1 TABLET A DAY
     Route: 048
  9. CALCIUM [Concomitant]
     Dosage: UNK
  10. FOLIC ACID [Concomitant]
     Dosage: UNK
  11. LYRICA [Concomitant]
     Dosage: UNK

REACTIONS (7)
  - Wound [Unknown]
  - Ulcer [Recovered/Resolved]
  - Leukocytosis [Unknown]
  - C-reactive protein increased [Unknown]
  - Red blood cell sedimentation rate increased [Unknown]
  - Blood creatinine increased [Unknown]
  - Pneumonia [Recovered/Resolved]
